FAERS Safety Report 8914364 (Version 1)
Quarter: 2012Q4

REPORT INFORMATION
  Report Type: 
  Country: IT (occurrence: IT)
  Receive Date: 20121116
  Receipt Date: 20121116
  Transmission Date: 20130627
  Serious: Yes (Life-Threatening)
  Sender: FDA-Public Use
  Company Number: IT-US-EMD SERONO, INC.-7173443

PATIENT
  Age: 34 Year
  Sex: Male

DRUGS (4)
  1. REBIF [Suspect]
     Indication: MULTIPLE SCLEROSIS
     Route: 058
     Dates: start: 20080528, end: 20120315
  2. REBIF [Suspect]
     Route: 058
     Dates: start: 2012
  3. FENTANYL CITRATE [Suspect]
     Indication: SURGERY
     Route: 042
     Dates: start: 20120320, end: 20120320
  4. PROPOFOL [Suspect]
     Indication: SURGERY
     Route: 042
     Dates: start: 20120320, end: 20120320

REACTIONS (1)
  - Cardio-respiratory arrest [Recovered/Resolved]
